FAERS Safety Report 23722033 (Version 1)
Quarter: 2024Q2

REPORT INFORMATION
  Report Type: Spontaneous
  Country: PT (occurrence: PT)
  Receive Date: 20240409
  Receipt Date: 20240409
  Transmission Date: 20240716
  Serious: Yes (Other)
  Sender: FDA-Public Use
  Company Number: PT-BAXTER-2024BAX015035

PATIENT
  Age: 61 Year
  Sex: Female

DRUGS (17)
  1. LETROZOLE [Suspect]
     Active Substance: LETROZOLE
     Indication: Breast cancer metastatic
     Dosage: 1ST LINE OF PALLIATIVE TREATMENT
     Route: 065
     Dates: start: 202011, end: 202204
  2. PACLITAXEL [Suspect]
     Active Substance: PACLITAXEL
     Indication: Invasive breast carcinoma
     Dosage: 6 CYCLES
     Route: 065
     Dates: start: 201305, end: 201309
  3. TALZENNA [Suspect]
     Active Substance: TALAZOPARIB TOSYLATE
     Indication: Breast cancer metastatic
     Dosage: 1 MILLIGRAM, QD (1 MG, 1X/DAY)
     Route: 065
     Dates: start: 202207, end: 202208
  4. TALZENNA [Suspect]
     Active Substance: TALAZOPARIB TOSYLATE
     Dosage: 0.75 MILLIGRAM, QD (0.75 MG, 1X/DAY)
     Route: 065
     Dates: start: 202208, end: 202209
  5. TALZENNA [Suspect]
     Active Substance: TALAZOPARIB TOSYLATE
     Dosage: 0.5 MILLIGRAM, QD (0.5 MG, 1X/DAY)
     Route: 065
     Dates: start: 202209
  6. DOXORUBICIN [Suspect]
     Active Substance: DOXORUBICIN
     Indication: Invasive breast carcinoma
     Dosage: 3 CYCLES
     Route: 065
     Dates: start: 201305, end: 201309
  7. TAMOXIFEN [Suspect]
     Active Substance: TAMOXIFEN
     Indication: Invasive breast carcinoma
     Dosage: ADJUVANT HORMONE THERAPY, SUSPENDED AT THE WILL OF THE PATIENT AFTER 5 YEARS OF TREATMENT
     Route: 065
     Dates: start: 2013, end: 201810
  8. RIBOCICLIB [Suspect]
     Active Substance: RIBOCICLIB
     Indication: Breast cancer metastatic
     Dosage: 1ST LINE OF PALLIATIVE T/T,DOSE REDUCTION TO 200 MG,SUSPENDED ON APR-2022 DUE TO DISEASE PROGRESSION
     Route: 065
     Dates: start: 202011, end: 202204
  9. RIBOCICLIB [Suspect]
     Active Substance: RIBOCICLIB
     Dosage: 200 MILLIGRAM (1ST LINE OF PALLIATIVE TREATMENT, DOSE REDUCTION TO 200 MG (2 LEVELS))
     Route: 065
     Dates: start: 202011, end: 202204
  10. CYCLOPHOSPHAMIDE [Suspect]
     Active Substance: CYCLOPHOSPHAMIDE
     Indication: Invasive breast carcinoma
     Dosage: 3 CYCLES
     Route: 065
     Dates: start: 201305, end: 201309
  11. GOSERELIN [Suspect]
     Active Substance: GOSERELIN
     Indication: Breast cancer metastatic
     Dosage: 1ST LINE OF PALLIATIVE TREATMENT
     Route: 065
     Dates: start: 202011, end: 202110
  12. RALTEGRAVIR [Concomitant]
     Active Substance: RALTEGRAVIR
     Dosage: UNK
     Route: 065
  13. PREGABALIN [Concomitant]
     Active Substance: PREGABALIN
     Dosage: UNK
     Route: 065
  14. ABACAVIR SULFATE\LAMIVUDINE [Concomitant]
     Active Substance: ABACAVIR SULFATE\LAMIVUDINE
     Dosage: UNK
     Route: 065
  15. PRAVASTATIN [Concomitant]
     Active Substance: PRAVASTATIN
     Dosage: UNK
     Route: 065
  16. BUPRENORPHINE [Concomitant]
     Active Substance: BUPRENORPHINE
     Dosage: UNK
     Route: 065
  17. FENTANYL [Concomitant]
     Active Substance: FENTANYL\FENTANYL CITRATE
     Dosage: UNK
     Route: 065

REACTIONS (7)
  - Metastases to liver [Unknown]
  - Metastases to bone [Unknown]
  - Metastases to lung [Unknown]
  - Haematotoxicity [Unknown]
  - Neutropenia [Recovered/Resolved]
  - Febrile neutropenia [Recovered/Resolved]
  - Neoplasm progression [Unknown]
